FAERS Safety Report 21478364 (Version 2)
Quarter: 2022Q4

REPORT INFORMATION
  Report Type: Spontaneous
  Country: SG (occurrence: SG)
  Receive Date: 20221019
  Receipt Date: 20221104
  Transmission Date: 20230113
  Serious: Yes (Other)
  Sender: FDA-Public Use
  Company Number: SG-TEVA-2022-SG-2817586

PATIENT
  Age: 75 Year
  Sex: Female

DRUGS (1)
  1. PREDNISOLONE [Suspect]
     Active Substance: PREDNISOLONE
     Indication: Product used for unknown indication
     Dosage: 9 MILLIGRAM DAILY;
     Route: 065

REACTIONS (2)
  - Mycobacterium abscessus infection [Recovered/Resolved]
  - Skin infection [Recovered/Resolved]
